FAERS Safety Report 5092914-7 (Version None)
Quarter: 2006Q3

REPORT INFORMATION
  Report Type: 
  Country: None (occurrence: None)
  Receive Date: 20060828
  Receipt Date: 20060817
  Transmission Date: 20061208
  Serious: Yes (Death, Other)
  Sender: FDA-Public Use
  Company Number: 310001L06ITA

PATIENT
  Age: 31 Year
  Sex: Female
  Weight: 63 kg

DRUGS (1)
  1. GONAL-F [Suspect]

REACTIONS (17)
  - ABDOMINAL DISCOMFORT [None]
  - ACUTE RESPIRATORY DISTRESS SYNDROME [None]
  - ASCITES [None]
  - BLOOD ALBUMIN DECREASED [None]
  - DIFFUSE ALVEOLAR DAMAGE [None]
  - DYSPNOEA [None]
  - HAEMATOCRIT INCREASED [None]
  - HAEMOGLOBIN INCREASED [None]
  - LEUKOCYTOSIS [None]
  - LIVER DISORDER [None]
  - OVARIAN CYST [None]
  - OVARIAN ENLARGEMENT [None]
  - OVARIAN HYPERSTIMULATION SYNDROME [None]
  - PLEURAL EFFUSION [None]
  - RESPIRATORY ARREST [None]
  - TACHYPNOEA [None]
  - UTERINE LEIOMYOMA [None]
